FAERS Safety Report 7169578-1 (Version None)
Quarter: 2010Q4

REPORT INFORMATION
  Report Type: 
  Country: None (occurrence: None)
  Receive Date: 20101217
  Receipt Date: 20101206
  Transmission Date: 20110411
  Serious: Yes (Other)
  Sender: FDA-Public Use
  Company Number: CA-JNJFOC-20101203081

PATIENT
  Sex: Male

DRUGS (2)
  1. JUNIOR STRENGTH TYLENOL GRAPE PUNCH [Suspect]
     Route: 048
  2. JUNIOR STRENGTH TYLENOL GRAPE PUNCH [Suspect]
     Indication: PRODUCT USED FOR UNKNOWN INDICATION
     Route: 048

REACTIONS (1)
  - HAEMATEMESIS [None]
